FAERS Safety Report 6965602-7 (Version None)
Quarter: 2010Q3

REPORT INFORMATION
  Report Type: 
  Country: None (occurrence: None)
  Receive Date: 20100903
  Receipt Date: 20100823
  Transmission Date: 20110219
  Serious: Yes (Other)
  Sender: FDA-Public Use
  Company Number: JP-ASTRAZENECA-2010SE39467

PATIENT
  Age: 70 Year
  Sex: Male

DRUGS (2)
  1. PROPOFOL [Suspect]
     Indication: INDUCTION AND MAINTENANCE OF ANAESTHESIA
     Route: 042
  2. PROPOFOL [Suspect]
     Dosage: 70 MG/HR FOR MAINTAINANCE
     Route: 042

REACTIONS (2)
  - ELECTROCARDIOGRAM QT PROLONGED [None]
  - TORSADE DE POINTES [None]
